FAERS Safety Report 11857300 (Version 2)
Quarter: 2017Q1

REPORT INFORMATION
  Report Type: Spontaneous
  Country: US (occurrence: US)
  Receive Date: 20151221
  Receipt Date: 20170313
  Transmission Date: 20170428
  Serious: Yes (Hospitalization, Other)
  Sender: FDA-Public Use
  Company Number: US-ELI_LILLY_AND_COMPANY-US201512006175

PATIENT
  Sex: Female

DRUGS (12)
  1. NICOTINE. [Concomitant]
     Active Substance: NICOTINE
     Indication: SMOKING CESSATION THERAPY
     Dosage: 14 MG, QD
     Route: 065
  2. HYDROCODONE/ACETAMINOPHEN [Concomitant]
     Active Substance: ACETAMINOPHEN\HYDROCODONE
     Indication: PAIN
     Dosage: UNK
  3. DIAZEPAM. [Concomitant]
     Active Substance: DIAZEPAM
     Indication: ANXIETY
     Dosage: 10 MG, PRN
     Route: 065
  4. SERTRALINE HYDROCHLORIDE. [Concomitant]
     Active Substance: SERTRALINE HYDROCHLORIDE
     Indication: AFFECTIVE DISORDER
     Dosage: 100 MG, QD
     Dates: start: 20130220, end: 20140221
  5. PREGABALIN. [Concomitant]
     Active Substance: PREGABALIN
     Indication: PAIN
     Dosage: 25 MG, UNK
  6. IBUPROFEN. [Concomitant]
     Active Substance: IBUPROFEN
     Indication: PAIN
     Dosage: 800 MG, PRN
     Dates: start: 20130102, end: 20140103
  7. DIAZEPAM. [Concomitant]
     Active Substance: DIAZEPAM
     Indication: PANIC ATTACK
  8. CYMBALTA [Suspect]
     Active Substance: DULOXETINE HYDROCHLORIDE
     Indication: MOOD ALTERED
     Dosage: 60 MG, QD
     Route: 065
  9. DIAZEPAM. [Concomitant]
     Active Substance: DIAZEPAM
     Indication: INSOMNIA
  10. DULOXETINE HYDROCHLORIDE. [Suspect]
     Active Substance: DULOXETINE HYDROCHLORIDE
     Indication: AFFECTIVE DISORDER
     Dosage: 30 MG, QD
     Route: 065
  11. RISPERIDONE. [Concomitant]
     Active Substance: RISPERIDONE
     Dosage: 0.5 MG, BID
     Route: 065
  12. LORATADINE. [Concomitant]
     Active Substance: LORATADINE
     Dosage: 10 MG, PRN

REACTIONS (22)
  - Confusional state [Unknown]
  - Fatigue [Unknown]
  - Suicidal ideation [Unknown]
  - Paraesthesia [Unknown]
  - Irritability [Unknown]
  - Anxiety [Unknown]
  - Vertigo [Unknown]
  - Hypomania [Unknown]
  - Agitation [Unknown]
  - Hyperhidrosis [Unknown]
  - Dysphoria [Unknown]
  - Nausea [Unknown]
  - Diarrhoea [Unknown]
  - Nightmare [Unknown]
  - Insomnia [Unknown]
  - Affect lability [Unknown]
  - Headache [Unknown]
  - Dizziness [Unknown]
  - Seizure [Unknown]
  - Sensory disturbance [Unknown]
  - Vomiting [Unknown]
  - Drug withdrawal syndrome [Unknown]
